FAERS Safety Report 7876658-1 (Version None)
Quarter: 2011Q4

REPORT INFORMATION
  Report Type: 
  Country: None (occurrence: None)
  Receive Date: 20111031
  Receipt Date: 20100721
  Transmission Date: 20120403
  Serious: No
  Sender: FDA-Public Use
  Company Number: US-BAYER-201028773NA

PATIENT
  Age: 65 Year
  Sex: Male
  Weight: 77.273 kg

DRUGS (6)
  1. CRESTOR [Concomitant]
  2. BLOOD PRESSURE MEDICATIONS [Concomitant]
  3. ACIPHEX [Concomitant]
  4. ULTRAVIST 300 [Suspect]
     Indication: COMPUTERISED TOMOGRAM THORAX
  5. ULTRAVIST 300 [Suspect]
     Indication: GASTRIC CANCER
     Dosage: RIGHT ANTECUBITAL USING POWER INJECTOR @ A RATE OF 2.5 ML/SECOND AND A WARMER
     Route: 042
     Dates: start: 20100721, end: 20100721
  6. FOLIC ACID [Concomitant]

REACTIONS (1)
  - URTICARIA [None]
